FAERS Safety Report 9542761 (Version 3)
Quarter: 2019Q2

REPORT INFORMATION
  Report Type: Spontaneous
  Country: US (occurrence: US)
  Receive Date: 20130923
  Receipt Date: 20190603
  Transmission Date: 20190711
  Serious: Yes (Other)
  Sender: FDA-Public Use
  Company Number: US-PFIZER INC-2013272915

PATIENT
  Age: 74 Year
  Sex: Female
  Weight: 71.66 kg

DRUGS (2)
  1. LYRICA [Suspect]
     Active Substance: PREGABALIN
     Dosage: UNK
  2. LYRICA CR [Suspect]
     Active Substance: PREGABALIN
     Dosage: 225 MG, 2X/DAY

REACTIONS (1)
  - Drug dependence [Unknown]
